FAERS Safety Report 23349338 (Version 1)
Quarter: 2023Q4

REPORT INFORMATION
  Report Type: Spontaneous
  Country: US (occurrence: US)
  Receive Date: 20231229
  Receipt Date: 20231229
  Transmission Date: 20240110
  Serious: No
  Sender: FDA-Public Use
  Company Number: US-MTPC-MTDA2023-0029510

PATIENT

DRUGS (2)
  1. RADICAVA [Suspect]
     Active Substance: EDARAVONE
     Indication: Product used for unknown indication
     Dosage: 10 DAYS ON AND 14 DAYS OF
     Route: 065
  2. RADICAVA [Suspect]
     Active Substance: EDARAVONE
     Indication: Product used for unknown indication
     Dosage: 10 DAYS ON AND 14 DAYS OF
     Route: 065

REACTIONS (1)
  - Inappropriate schedule of product administration [Recovered/Resolved]
